FAERS Safety Report 6152370-4 (Version None)
Quarter: 2009Q2

REPORT INFORMATION
  Report Type: 
  Country: None (occurrence: None)
  Receive Date: 20090413
  Receipt Date: 20080515
  Transmission Date: 20091009
  Serious: Yes (Hospitalization, Other)
  Sender: FDA-Public Use
  Company Number: US-ASTRAZENECA-2006UW07700

PATIENT
  Age: 8785 Day
  Sex: Female
  Weight: 151.5 kg

DRUGS (12)
  1. SEROQUEL [Suspect]
     Indication: DEPRESSION
     Route: 048
     Dates: start: 20041101, end: 20060401
  2. SEROQUEL [Suspect]
     Dosage: 100-600 MG
     Route: 048
     Dates: start: 20041130
  3. WELLBUTRIN [Concomitant]
  4. EFFEXOR [Concomitant]
  5. RISPERDAL [Concomitant]
  6. TRAZODONE HCL [Concomitant]
  7. GLUCOPHAGE [Concomitant]
  8. GLYBURIDE [Concomitant]
  9. ACTOS [Concomitant]
  10. INSULIN [Concomitant]
  11. LEXAPRO [Concomitant]
  12. KLONOPIN [Concomitant]

REACTIONS (11)
  - ALOPECIA [None]
  - ANXIETY [None]
  - BORDERLINE PERSONALITY DISORDER [None]
  - DIABETES MELLITUS [None]
  - DYSTHYMIC DISORDER [None]
  - FACTITIOUS DISORDER [None]
  - PANIC ATTACK [None]
  - POST-TRAUMATIC STRESS DISORDER [None]
  - SUICIDAL IDEATION [None]
  - TEMPERATURE INTOLERANCE [None]
  - TYPE 1 DIABETES MELLITUS [None]
